FAERS Safety Report 19357230 (Version 1)
Quarter: 2021Q2

REPORT INFORMATION
  Report Type: Spontaneous
  Country: US (occurrence: US)
  Receive Date: 20210601
  Receipt Date: 20210601
  Transmission Date: 20210717
  Serious: Yes (Hospitalization)
  Sender: FDA-Public Use
  Company Number: US-LUPIN PHARMACEUTICALS INC.-2021-08229

PATIENT
  Age: 14 Year
  Sex: Female

DRUGS (8)
  1. OCTREOTIDE. [Suspect]
     Active Substance: OCTREOTIDE
     Indication: UPPER GASTROINTESTINAL HAEMORRHAGE
     Dosage: UNK
     Route: 065
  2. BUDESONIDE. [Suspect]
     Active Substance: BUDESONIDE
     Indication: CHYLOTHORAX
  3. TRAMETINIB [Concomitant]
     Active Substance: TRAMETINIB
     Indication: LYMPHATIC DISORDER
     Dosage: 0.5 MILLIGRAM, QD
     Route: 065
  4. ALBUMIN [Suspect]
     Active Substance: ALBUMIN HUMAN
     Indication: UPPER GASTROINTESTINAL HAEMORRHAGE
     Dosage: UNK
     Route: 042
  5. ALBUMIN [Suspect]
     Active Substance: ALBUMIN HUMAN
     Indication: CHYLOTHORAX
  6. TRAMETINIB [Concomitant]
     Active Substance: TRAMETINIB
     Dosage: 1 MILLIGRAM, QD
     Route: 065
  7. BUDESONIDE. [Suspect]
     Active Substance: BUDESONIDE
     Indication: UPPER GASTROINTESTINAL HAEMORRHAGE
     Dosage: UNK
     Route: 048
  8. OCTREOTIDE. [Suspect]
     Active Substance: OCTREOTIDE
     Indication: CHYLOTHORAX

REACTIONS (1)
  - Drug ineffective [Unknown]
